FAERS Safety Report 19022792 (Version 1)
Quarter: 2021Q1

REPORT INFORMATION
  Report Type: Report from Study
  Country: SA (occurrence: SA)
  Receive Date: 20210318
  Receipt Date: 20210318
  Transmission Date: 20210420
  Serious: Yes (Other)
  Sender: FDA-Public Use
  Company Number: SA-JNJFOC-20210322190

PATIENT

DRUGS (5)
  1. INFLIXIMAB, RECOMBINANT [Suspect]
     Active Substance: INFLIXIMAB
     Indication: RHEUMATOID ARTHRITIS
     Route: 042
  2. ABATACEPT [Suspect]
     Active Substance: ABATACEPT
     Indication: RHEUMATOID ARTHRITIS
     Route: 065
  3. METHOTREXATE. [Concomitant]
     Active Substance: METHOTREXATE
  4. TOCILIZUMAB. [Suspect]
     Active Substance: TOCILIZUMAB
     Indication: RHEUMATOID ARTHRITIS
     Route: 065
  5. RITUXIMAB. [Suspect]
     Active Substance: RITUXIMAB
     Indication: RHEUMATOID ARTHRITIS
     Route: 065

REACTIONS (41)
  - Mucosal disorder [Unknown]
  - Gastrointestinal disorder [Unknown]
  - Iron deficiency [Unknown]
  - Pain [Unknown]
  - Respiratory disorder [Unknown]
  - Cough [Unknown]
  - Pyrexia [Unknown]
  - Fatigue [Unknown]
  - Headache [Unknown]
  - Nocturia [Unknown]
  - Hypercalcaemia [Unknown]
  - Flank pain [Unknown]
  - Hypersensitivity [Unknown]
  - Hyperkalaemia [Unknown]
  - Dysphonia [Unknown]
  - Cardiovascular disorder [Unknown]
  - Endocrine disorder [Unknown]
  - Infusion site reaction [Unknown]
  - Infection [Unknown]
  - Sleep apnoea syndrome [Unknown]
  - Retrograde amnesia [Unknown]
  - Weight increased [Unknown]
  - Varicose vein [Unknown]
  - Dizziness [Unknown]
  - Exophthalmos [Unknown]
  - Eye pain [Unknown]
  - Renal disorder [Unknown]
  - Oedema [Unknown]
  - Dyspnoea [Unknown]
  - Sleep disorder [Unknown]
  - Tinnitus [Unknown]
  - Immune system disorder [Unknown]
  - Nervous system disorder [Unknown]
  - Mental disorder [Unknown]
  - Deafness [Unknown]
  - Abortion [Unknown]
  - Asthenia [Unknown]
  - Menstruation irregular [Unknown]
  - Breast mass [Unknown]
  - Blood disorder [Unknown]
  - Exposure during pregnancy [Recovered/Resolved]
